FAERS Safety Report 10952605 (Version 2)
Quarter: 2015Q1

REPORT INFORMATION
  Report Type: Report from Study
  Country: CA (occurrence: CA)
  Receive Date: 20150325
  Receipt Date: 20150330
  Transmission Date: 20150721
  Serious: Yes (Other)
  Sender: FDA-Public Use
  Company Number: CA-JNJFOC-20150313705

PATIENT
  Sex: Male
  Weight: 74.8 kg

DRUGS (1)
  1. REMICADE [Suspect]
     Active Substance: INFLIXIMAB
     Indication: CROHN^S DISEASE
     Route: 042
     Dates: start: 20090929

REACTIONS (2)
  - Influenza like illness [Unknown]
  - Splenomegaly [Unknown]

NARRATIVE: CASE EVENT DATE: 2015
